FAERS Safety Report 15530286 (Version 3)
Quarter: 2018Q4

REPORT INFORMATION
  Report Type: Report from Study
  Country: BR (occurrence: BR)
  Receive Date: 20181018
  Receipt Date: 20181115
  Transmission Date: 20190205
  Serious: Yes (Hospitalization)
  Sender: FDA-Public Use
  Company Number: BR-BAYER-2018-101432

PATIENT
  Age: 74 Year
  Sex: Female

DRUGS (24)
  1. BLINDED RIVAROXABAN [Suspect]
     Active Substance: RIVAROXABAN
     Indication: PERIPHERAL ARTERIAL OCCLUSIVE DISEASE
  2. CALCIUM [CALCIUM] [Concomitant]
     Active Substance: CALCIUM
     Dosage: 500 IU, UNK
     Route: 048
     Dates: end: 201811
  3. BLINDED RIVAROXABAN [Suspect]
     Active Substance: RIVAROXABAN
     Indication: THROMBOSIS PROPHYLAXIS
     Dosage: 2.5 MG, UNK
     Route: 048
     Dates: start: 20171103, end: 20181106
  4. ALOGLIPTIN. [Concomitant]
     Active Substance: ALOGLIPTIN
     Indication: DIABETES MELLITUS
     Dosage: 12.5 MG, UNK
     Route: 048
     Dates: end: 201811
  5. OMEPRAZOLE. [Concomitant]
     Active Substance: OMEPRAZOLE
     Indication: GASTRITIS
     Dosage: UNK UNK, PRN
     Dates: start: 2015
  6. DIAMICRON [Concomitant]
     Active Substance: GLICLAZIDE
     Dosage: 30 MG, QD
  7. THIOCTACID [Concomitant]
     Active Substance: THIOCTIC ACID
     Dosage: 600 MG, QD
  8. DEPURAN [Concomitant]
     Dosage: 50 GTT ONCE A WEEK FOR 3 MONTHS AND 30 GTT ONCE A WEEK
  9. GLICLAZIDE [Concomitant]
     Active Substance: GLICLAZIDE
     Dosage: 30 MG, UNK
     Route: 048
     Dates: end: 201811
  10. VITAMIIN C [Concomitant]
     Active Substance: ASCORBIC ACID
     Dosage: 5000 IU, UNK
     Route: 048
     Dates: end: 201811
  11. CITONEURIN [Concomitant]
     Active Substance: CYANOCOBALAMIN\PYRIDOXINE HYDROCHLORIDE\THIAMINE
     Dosage: 5000 MICROGRAMS QD FOR2 MONTHS
  12. THIOCTIC ACID [Concomitant]
     Active Substance: THIOCTIC ACID
     Dosage: 600 MG, UNK
     Route: 048
     Dates: end: 201811
  13. SIMVASTATIN. [Concomitant]
     Active Substance: SIMVASTATIN
     Dosage: 10 MG, UNK
  14. IRON COMPLEX [Concomitant]
     Dosage: 500 ?G, UNK
     Route: 048
     Dates: end: 201811
  15. BLINDED RIVAROXABAN [Suspect]
     Active Substance: RIVAROXABAN
     Indication: PERIPHERAL REVASCULARISATION
  16. LOSARTAN. [Concomitant]
     Active Substance: LOSARTAN
     Dosage: 50 MG, BID
  17. NEUTROFER [Concomitant]
     Active Substance: FERROUS BISGLYCINATE
     Dosage: 500 MG, BID
  18. ACETYLSALICYLIC ACID({=100 MG) [Suspect]
     Active Substance: ASPIRIN
     Indication: PERIPHERAL ARTERIAL OCCLUSIVE DISEASE
  19. PIOGLITAZONE HYDROCHLORIDE. [Concomitant]
     Active Substance: PIOGLITAZONE HYDROCHLORIDE
     Dosage: 30 MG, QD
  20. ACETYLSALICYLIC ACID [Concomitant]
     Active Substance: ASPIRIN
     Indication: PERIPHERAL ARTERIAL OCCLUSIVE DISEASE
     Dosage: TOTAL DAILY DOSE 100
     Route: 048
     Dates: start: 20171103
  21. METFORMIN [Concomitant]
     Active Substance: METFORMIN HYDROCHLORIDE
     Dosage: 850 MG, UNK
     Route: 048
     Dates: end: 201811
  22. ACETYLSALICYLIC ACID({=100 MG) [Suspect]
     Active Substance: ASPIRIN
     Indication: THROMBOSIS PROPHYLAXIS
     Dosage: 100 MG, UNK
     Route: 048
     Dates: start: 20171103, end: 20181106
  23. ACETYLSALICYLIC ACID({=100 MG) [Suspect]
     Active Substance: ASPIRIN
     Indication: PERIPHERAL REVASCULARISATION
  24. NESINA [Concomitant]
     Active Substance: ALOGLIPTIN BENZOATE
     Dosage: 12,5/850MG

REACTIONS (3)
  - Localised infection [Recovering/Resolving]
  - Extremity necrosis [Recovering/Resolving]
  - Intestinal haemorrhage [None]

NARRATIVE: CASE EVENT DATE: 20180504
